FAERS Safety Report 13836593 (Version 3)
Quarter: 2018Q3

REPORT INFORMATION
  Report Type: Spontaneous
  Country: FR (occurrence: FR)
  Receive Date: 20170804
  Receipt Date: 20180712
  Transmission Date: 20181010
  Serious: Yes (Congenital Anomaly, Other)
  Sender: FDA-Public Use
  Company Number: FR-ABBVIE-17P-056-2062492-00

PATIENT
  Sex: Female

DRUGS (1)
  1. DEPAKINE CHRONO [Suspect]
     Active Substance: VALPROATE SODIUM
     Indication: MATERNAL EXPOSURE TIMING UNSPECIFIED
     Route: 064

REACTIONS (30)
  - Tympanic membrane disorder [Unknown]
  - Foetal exposure during pregnancy [Unknown]
  - Hyperthermia [Unknown]
  - Speech disorder developmental [Unknown]
  - Memory impairment [Unknown]
  - Low set ears [Unknown]
  - Astigmatism [Unknown]
  - Palatal disorder [Unknown]
  - Bronchitis [Unknown]
  - Deafness [Unknown]
  - Talipes [Unknown]
  - Dysmorphism [Unknown]
  - Muscular weakness [Unknown]
  - Hypotonia [Unknown]
  - Hypermobility syndrome [Unknown]
  - Adenoidectomy [Unknown]
  - Foot deformity [Unknown]
  - Tympanic membrane perforation [Unknown]
  - Hypertelorism of orbit [Unknown]
  - Scoliosis [Unknown]
  - Intellectual disability [Unknown]
  - Myopia [Unknown]
  - Psychomotor skills impaired [Unknown]
  - Foetal growth restriction [Unknown]
  - Adenoidectomy [Unknown]
  - Cafe au lait spots [Unknown]
  - Congenital central nervous system anomaly [Unknown]
  - Otitis media [Unknown]
  - Encephalopathy [Unknown]
  - Ear pain [Unknown]

NARRATIVE: CASE EVENT DATE: 1998
